FAERS Safety Report 19121061 (Version 1)
Quarter: 2021Q2

REPORT INFORMATION
  Report Type: Spontaneous
  Country: US (occurrence: US)
  Receive Date: 20210412
  Receipt Date: 20210412
  Transmission Date: 20210717
  Serious: Yes (Hospitalization)
  Sender: FDA-Public Use
  Company Number: US-AMGEN-USASP2020214011

PATIENT
  Sex: Female

DRUGS (17)
  1. ETODOLAC. [Concomitant]
     Active Substance: ETODOLAC
     Dosage: UNK
  2. IRON [Concomitant]
     Active Substance: IRON
     Dosage: UNK
  3. HYDROCODONE/ACETAMINOPHEN [Concomitant]
     Active Substance: ACETAMINOPHEN\HYDROCODONE
     Dosage: UNK
  4. BROMDAY [Concomitant]
     Active Substance: BROMFENAC SODIUM
     Dosage: UNK
  5. ENBREL [Suspect]
     Active Substance: ETANERCEPT
     Indication: RHEUMATOID ARTHRITIS
     Dosage: 50 MILLIGRAM, QWK
     Route: 058
  6. VITAMIN C [Concomitant]
     Active Substance: ASCORBIC ACID
     Dosage: UNK
  7. KETOROLAC TROMETAMINE [Concomitant]
     Active Substance: KETOROLAC TROMETHAMINE
     Dosage: UNK
  8. FLUVIRINE [Concomitant]
     Dosage: UNK
     Dates: start: 2013, end: 2014
  9. EDARBI [Concomitant]
     Active Substance: AZILSARTAN KAMEDOXOMIL
     Dosage: UNK
  10. XARELTO [Concomitant]
     Active Substance: RIVAROXABAN
     Dosage: UNK
  11. PREDNISONE. [Concomitant]
     Active Substance: PREDNISONE
     Dosage: UNK
  12. AMOXICILLIN. [Concomitant]
     Active Substance: AMOXICILLIN
     Dosage: UNK
  13. PREDNISOLONE ACETATE. [Concomitant]
     Active Substance: PREDNISOLONE ACETATE
     Dosage: UNK
  14. MONTELUKAST SODIUM. [Concomitant]
     Active Substance: MONTELUKAST SODIUM
     Dosage: UNK
  15. BESIVANCE [Concomitant]
     Active Substance: BESIFLOXACIN
     Dosage: UNK
  16. SULFASALAZINE. [Concomitant]
     Active Substance: SULFASALAZINE
     Dosage: UNK
  17. VITAMIN D [ERGOCALCIFEROL] [Concomitant]
     Active Substance: ERGOCALCIFEROL
     Dosage: UNK

REACTIONS (1)
  - Hospitalisation [Unknown]
